FAERS Safety Report 21704198 (Version 1)
Quarter: 2022Q4

REPORT INFORMATION
  Report Type: Report from Study
  Country: IT (occurrence: IT)
  Receive Date: 20221209
  Receipt Date: 20221209
  Transmission Date: 20230113
  Serious: Yes (Other)
  Sender: FDA-Public Use
  Company Number: None

PATIENT
  Age: 14 Year
  Sex: Male
  Weight: 49 kg

DRUGS (3)
  1. ETOPOSIDE [Suspect]
     Active Substance: ETOPOSIDE
     Indication: Product used for unknown indication
     Dosage: 5 DOSES EVERY 12 HOURS 160MG , DURATION : 2 DAY
     Dates: start: 20221020, end: 20221022
  2. ELDISINE [Suspect]
     Active Substance: VINDESINE SULFATE
     Indication: Product used for unknown indication
     Dosage: 4.5 MG IN INTRAVENOUS PUSHES
     Dates: start: 20221018, end: 20221018
  3. CYTARABINE [Suspect]
     Active Substance: CYTARABINE
     Indication: Diffuse large B-cell lymphoma stage IV
     Dosage: 4 DOSES OF 4800 MG CYTARABINE EVERY 12 HOURS , DURATION : 2 DAYS
     Dates: start: 20221018, end: 20221020

REACTIONS (2)
  - Cytopenia [Recovering/Resolving]
  - Pyrexia [Unknown]

NARRATIVE: CASE EVENT DATE: 20221029
